FAERS Safety Report 16904504 (Version 1)
Quarter: 2019Q4

REPORT INFORMATION
  Report Type: Spontaneous
  Country: US (occurrence: US)
  Receive Date: 20191010
  Receipt Date: 20191010
  Transmission Date: 20200122
  Serious: No
  Sender: FDA-Public Use
  Company Number: US-CHILTERN-US-2019-000637

PATIENT
  Age: 72 Year
  Sex: Male

DRUGS (4)
  1. TRAVATAN [Concomitant]
     Active Substance: TRAVOPROST
     Indication: OPEN ANGLE GLAUCOMA
     Dosage: UNK (BOTH EYES)
     Route: 047
     Dates: start: 2016
  2. BRIMONIDINE [Concomitant]
     Active Substance: BRIMONIDINE TARTRATE
     Indication: OPEN ANGLE GLAUCOMA
     Dosage: UNK, BOTH EYES
     Route: 047
     Dates: start: 201901
  3. ROCKLATAN [Suspect]
     Active Substance: LATANOPROST\NETARSUDIL MESYLATE
     Indication: OPEN ANGLE GLAUCOMA
     Dosage: UNK, QD (IN LEFT EYE AT BED TIME)
     Route: 047
     Dates: start: 20190520, end: 20190622
  4. ROCKLATAN [Suspect]
     Active Substance: LATANOPROST\NETARSUDIL MESYLATE
     Indication: INTRAOCULAR PRESSURE TEST ABNORMAL

REACTIONS (1)
  - Corneal oedema [Recovering/Resolving]
